FAERS Safety Report 16781517 (Version 1)
Quarter: 2019Q3

REPORT INFORMATION
  Report Type: Spontaneous
  Country: US (occurrence: US)
  Receive Date: 20190906
  Receipt Date: 20190906
  Transmission Date: 20191005
  Serious: Yes (Hospitalization)
  Sender: FDA-Public Use
  Company Number: US-ASTRAZENECA-2019SF26272

PATIENT
  Age: 56 Year
  Sex: Female
  Weight: 77.7 kg

DRUGS (8)
  1. KEPPRA [Concomitant]
     Active Substance: LEVETIRACETAM
  2. GABAPENTIN. [Concomitant]
     Active Substance: GABAPENTIN
  3. ALLEGRA [Concomitant]
     Active Substance: FEXOFENADINE HYDROCHLORIDE
     Indication: RHINITIS ALLERGIC
  4. AMANTADINE. [Concomitant]
     Active Substance: AMANTADINE HYDROCHLORIDE
  5. SENA [Concomitant]
     Indication: CONSTIPATION
  6. FASLODEX [Suspect]
     Active Substance: FULVESTRANT
     Indication: BREAST CANCER METASTATIC
     Dosage: 500.0MG UNKNOWN
     Route: 030
     Dates: start: 20190802
  7. OMEPRAZOLE. [Suspect]
     Active Substance: OMEPRAZOLE
     Route: 048
  8. PEPCID [Concomitant]
     Active Substance: FAMOTIDINE

REACTIONS (3)
  - Headache [Unknown]
  - Drug reaction with eosinophilia and systemic symptoms [Unknown]
  - Asthenia [Unknown]

NARRATIVE: CASE EVENT DATE: 20190802
